FAERS Safety Report 9981782 (Version 1)
Quarter: 2014Q1

REPORT INFORMATION
  Report Type: Report from Study
  Country: PR (occurrence: PR)
  Receive Date: 20140307
  Receipt Date: 20140307
  Transmission Date: 20141002
  Serious: No
  Sender: FDA-Public Use
  Company Number: PR-ABBVIE-13P-131-1181947-00

PATIENT
  Sex: Female
  Weight: 68.1 kg

DRUGS (10)
  1. HUMIRA [Suspect]
     Indication: RHEUMATOID ARTHRITIS
     Route: 058
     Dates: end: 20131128
  2. FOLIC ACID [Concomitant]
     Indication: RHEUMATOID ARTHRITIS
     Route: 048
  3. KLONOPIN [Concomitant]
     Indication: PANIC ATTACK
     Route: 048
  4. AMBIEN [Concomitant]
     Indication: INSOMNIA
     Dosage: 1 AT NIGHT TIME
     Route: 048
  5. METFORMIN [Concomitant]
     Indication: DIABETES MELLITUS
     Route: 048
  6. ATENOLOL [Concomitant]
     Indication: HYPERTENSION
     Route: 048
  7. INTAPAMIDE [Concomitant]
     Indication: DIURETIC THERAPY
     Route: 048
  8. EVISTA [Concomitant]
     Indication: OSTEOPOROSIS
     Route: 048
  9. METHOTREXATE [Concomitant]
     Indication: RHEUMATOID ARTHRITIS
     Route: 048
  10. PLAQUENIL [Concomitant]
     Indication: RHEUMATOID ARTHRITIS
     Route: 048

REACTIONS (2)
  - Breast mass [Unknown]
  - Urinary tract infection [Not Recovered/Not Resolved]
